FAERS Safety Report 12269122 (Version 1)
Quarter: 2016Q2

REPORT INFORMATION
  Report Type: Spontaneous
  Country: DE (occurrence: DE)
  Receive Date: 20160414
  Receipt Date: 20160414
  Transmission Date: 20160815
  Serious: Yes (Other)
  Sender: FDA-Public Use
  Company Number: DE-B.I. PHARMACEUTICALS,INC./RIDGEFIELD-2016-BI-20648DE

PATIENT
  Age: 62 Year
  Sex: Male
  Weight: 111 kg

DRUGS (1)
  1. PRADAXA [Suspect]
     Active Substance: DABIGATRAN ETEXILATE MESYLATE
     Indication: PULMONARY EMBOLISM
     Dosage: 220 MG
     Route: 048
     Dates: start: 20151111

REACTIONS (4)
  - Pain in extremity [Recovered/Resolved]
  - Tachycardia [Recovered/Resolved]
  - Product quality issue [Unknown]
  - Gastrointestinal pain [Recovered/Resolved]

NARRATIVE: CASE EVENT DATE: 20160325
